FAERS Safety Report 9981358 (Version 1)
Quarter: 2014Q1

REPORT INFORMATION
  Report Type: Spontaneous
  Country: NL (occurrence: NL)
  Receive Date: 20140307
  Receipt Date: 20140307
  Transmission Date: 20141002
  Serious: Yes (Other)
  Sender: FDA-Public Use
  Company Number: NL-ELI_LILLY_AND_COMPANY-NL201402009018

PATIENT
  Age: 75 Year
  Sex: Female

DRUGS (7)
  1. FORSTEO [Suspect]
     Indication: OSTEOPOROSIS
     Dosage: 20 UG, QD
     Route: 065
     Dates: start: 20140129
  2. KENACORT [Suspect]
     Indication: PERIARTHRITIS
     Dosage: 11 ML, SINGLE
     Route: 065
     Dates: start: 20140206, end: 20140206
  3. PHENOBARBITON NATRIUM [Concomitant]
     Dosage: 90 MG, QD
     Route: 065
     Dates: start: 1970
  4. ETHYMAL [Concomitant]
     Dosage: 250 MG, BID
     Route: 065
     Dates: start: 1970
  5. CALCI CHEW D3 [Concomitant]
     Dosage: 1 DF, BID
     Route: 065
     Dates: start: 20040601
  6. PLAQUENIL                          /00072602/ [Concomitant]
     Dosage: 200 MG, QD
     Route: 065
     Dates: start: 20050803
  7. ALENDRONINEZUUR A [Concomitant]
     Dosage: 70 MG, WEEKLY (1/W)
     Route: 065
     Dates: start: 20051111

REACTIONS (2)
  - Petit mal epilepsy [Recovering/Resolving]
  - Periarthritis [Unknown]
